FAERS Safety Report 13154175 (Version 1)
Quarter: 2017Q1

REPORT INFORMATION
  Report Type: Spontaneous
  Country: US (occurrence: US)
  Receive Date: 20170126
  Receipt Date: 20170126
  Transmission Date: 20170428
  Serious: No
  Sender: FDA-Public Use
  Company Number: None

PATIENT
  Age: 46 Year
  Sex: Female
  Weight: 72.64 kg

DRUGS (4)
  1. DOANS PILLS [Concomitant]
  2. ADVIL [Concomitant]
     Active Substance: IBUPROFEN
  3. ICY HOT [Concomitant]
     Active Substance: MENTHOL\METHYL SALICYLATE
  4. SULFAMETH 800MG/160 [Suspect]
     Active Substance: SULFAMETHOXAZOLE\TRIMETHOPRIM
     Indication: BREAST ABSCESS
     Dosage: 1 PILL 2X A DAY 2X BY MOUTH WITH WATER
     Route: 048
     Dates: start: 20170107, end: 20170108

REACTIONS (2)
  - Pain in extremity [None]
  - Arthralgia [None]

NARRATIVE: CASE EVENT DATE: 20170107
